FAERS Safety Report 22658591 (Version 1)
Quarter: 2023Q2

REPORT INFORMATION
  Report Type: Other
  Country: FR (occurrence: FR)
  Receive Date: 20230630
  Receipt Date: 20230630
  Transmission Date: 20230722
  Serious: Yes (Life-Threatening, Hospitalization, Other)
  Sender: FDA-Public Use
  Company Number: None

PATIENT
  Age: 45 Year
  Sex: Female
  Weight: 119 kg

DRUGS (13)
  1. VANCOMYCIN [Suspect]
     Active Substance: VANCOMYCIN
     Indication: Meningitis meningococcal
     Dosage: UNK, BLADDER IRRIGATION
     Route: 042
     Dates: start: 20181127, end: 20181228
  2. MEROPENEM [Suspect]
     Active Substance: MEROPENEM
     Indication: Infection
     Dosage: 2 GRAM, BID, BLADDER IRRIGATION
     Route: 042
     Dates: start: 20181229, end: 20190106
  3. MEROPENEM [Suspect]
     Active Substance: MEROPENEM
     Indication: Meningitis meningococcal
     Dosage: 2 GRAM, BLADDER IRRIGATION
     Route: 065
  4. MEROPENEM [Suspect]
     Active Substance: MEROPENEM
     Dosage: 2 GRAM, Q8H, BLADDER IRRIGATION
     Route: 042
     Dates: start: 20181126, end: 20181228
  5. PANTOPRAZOLE [Suspect]
     Active Substance: PANTOPRAZOLE
     Indication: Prophylaxis against gastrointestinal ulcer
     Dosage: 20 MILLIGRAM
     Route: 048
     Dates: start: 20181116
  6. PANTOPRAZOLE [Suspect]
     Active Substance: PANTOPRAZOLE
     Dosage: 40 MG, QD
     Route: 048
     Dates: start: 20181121, end: 20190101
  7. PANTOPRAZOLE [Suspect]
     Active Substance: PANTOPRAZOLE
     Dosage: 20 MILLIGRAM
     Route: 048
     Dates: start: 20181020, end: 20181113
  8. FOSFOMYCIN [Suspect]
     Active Substance: FOSFOMYCIN
     Indication: Infection
     Dosage: 4 GRAM, Q6H, (4 G, QID)
     Route: 042
     Dates: start: 20190102, end: 20190107
  9. FOSFOMYCIN [Suspect]
     Active Substance: FOSFOMYCIN
     Indication: Meningitis meningococcal
     Dosage: 4 GRAM, Q6H (4 G, QID)
     Route: 042
     Dates: start: 20181229, end: 20190101
  10. FOSFOMYCIN [Suspect]
     Active Substance: FOSFOMYCIN
     Dosage: 4 GRAM, Q6H (4 G, QID)
     Route: 042
     Dates: start: 20190108, end: 20190108
  11. FERROUS SULFATE [Suspect]
     Active Substance: FERROUS SULFATE
     Indication: Iron deficiency
     Dosage: 80 MILLIGRAM, BID
     Route: 048
     Dates: start: 20181121, end: 20190102
  12. COLISTIN [Concomitant]
     Active Substance: COLISTIN
     Indication: Product used for unknown indication
     Dosage: UNK
     Route: 065
  13. AZTREONAM [Concomitant]
     Active Substance: AZTREONAM
     Indication: Product used for unknown indication
     Dosage: UNK
     Route: 065
     Dates: start: 20190108

REACTIONS (10)
  - Oedema [None]
  - Erythema [None]
  - Agranulocytosis [Recovered/Resolved]
  - Skin exfoliation [None]
  - Rash [Unknown]
  - Drug reaction with eosinophilia and systemic symptoms [None]
  - Pruritus [None]
  - Neutrophil count decreased [Unknown]
  - Eosinophilia [Unknown]
  - Off label use [Unknown]

NARRATIVE: CASE EVENT DATE: 20181122
